FAERS Safety Report 22938627 (Version 2)
Quarter: 2023Q4

REPORT INFORMATION
  Report Type: Spontaneous
  Country: CA (occurrence: CA)
  Receive Date: 20230913
  Receipt Date: 20231011
  Transmission Date: 20240110
  Serious: Yes (Other)
  Sender: FDA-Public Use
  Company Number: CA-AMERICAN REGENT INC-2023002159

PATIENT
  Age: 30 Year
  Sex: Female

DRUGS (2)
  1. VENOFER [Suspect]
     Active Substance: IRON SUCROSE
     Indication: Blood iron decreased
     Dosage: 300 MILLIGRAM
     Route: 042
     Dates: start: 2023, end: 2023
  2. VENOFER [Suspect]
     Active Substance: IRON SUCROSE
     Indication: Anaemia of pregnancy

REACTIONS (11)
  - Blood pressure immeasurable [Recovered/Resolved]
  - Cooling therapy [Recovered/Resolved]
  - Oxygen therapy [Recovered/Resolved]
  - Pallor [Recovering/Resolving]
  - Pulse abnormal [Unknown]
  - Malaise [Recovering/Resolving]
  - Exposure during pregnancy [Unknown]
  - Hyperhidrosis [Recovering/Resolving]
  - Dizziness [Recovered/Resolved]
  - Hypotension [Recovered/Resolved]
  - Nausea [Recovered/Resolved]

NARRATIVE: CASE EVENT DATE: 20230101
